FAERS Safety Report 8035776-8 (Version None)
Quarter: 2011Q4

REPORT INFORMATION
  Report Type: 
  Country: None (occurrence: None)
  Receive Date: 20111228
  Receipt Date: 20111215
  Transmission Date: 20120403
  Serious: Yes (Hospitalization)
  Sender: FDA-Public Use
  Company Number: ACO_24379_2011

PATIENT
  Age: 32 Year
  Sex: Female

DRUGS (20)
  1. OMEGA 3 6 9 (OMEGA 9 FATTY ACIDS, OMEGA-3 FATTY ACIDS, OMEGA-6 FATTY A [Concomitant]
  2. FLOMAX [Concomitant]
  3. REACTINE (CETIRIZINE HYDROCHLORIDE) [Concomitant]
  4. AVONEX [Concomitant]
  5. VITAMIN B6 [Concomitant]
  6. ASCORBIC ACID [Concomitant]
  7. MARIJUANA (CANNABIS SATIVA) [Concomitant]
  8. PROPRANOLOL [Concomitant]
  9. GABAPENTIN [Concomitant]
  10. METHYLPREDNISOLONE [Concomitant]
  11. MITOXANTRONE [Concomitant]
  12. VITAMIN D [Concomitant]
  13. CALCIUM CARBONATE [Concomitant]
  14. SULFATRIM (SULFAMETHOXAZOLE, TRIMETHOPRIM) [Concomitant]
  15. ALERTEC (MODAFINIL) [Concomitant]
  16. AMPYRA [Suspect]
     Indication: MULTIPLE SCLEROSIS
     Dosage: 10 MG, BID, ORAL
     Route: 048
     Dates: start: 20060205
  17. ESCITALOPRAM [Concomitant]
  18. DETROL LA [Concomitant]
  19. RELPAX [Concomitant]
  20. REBIF [Concomitant]

REACTIONS (11)
  - INTERNATIONAL NORMALISED RATIO DECREASED [None]
  - BLADDER SPASM [None]
  - URINARY TRACT INFECTION [None]
  - CULTURE URINE POSITIVE [None]
  - URINARY INCONTINENCE [None]
  - HYPERTONIA [None]
  - SENSORY DISTURBANCE [None]
  - ALANINE AMINOTRANSFERASE DECREASED [None]
  - BLADDER PAIN [None]
  - STREPTOCOCCUS TEST POSITIVE [None]
  - MUSCULAR WEAKNESS [None]
